FAERS Safety Report 13170270 (Version 8)
Quarter: 2017Q2

REPORT INFORMATION
  Report Type: Report from Study
  Country: JP (occurrence: JP)
  Receive Date: 20170201
  Receipt Date: 20170427
  Transmission Date: 20170830
  Serious: Yes (Hospitalization)
  Sender: FDA-Public Use
  Company Number: JP-AMGEN-JPNCT2016104309

PATIENT
  Age: 65 Year
  Sex: Female
  Weight: 41.5 kg

DRUGS (30)
  1. OXALIPLATIN. [Concomitant]
     Active Substance: OXALIPLATIN
     Indication: COLON CANCER
     Dosage: 121 MG, Q2WEEKS
     Route: 041
     Dates: start: 20160623, end: 20160824
  2. CALCIUM LEVOFOLINATE [Concomitant]
     Active Substance: LEVOLEUCOVORIN CALCIUM
     Indication: COLON CANCER
     Dosage: 286 MG, Q2WEEKS
     Route: 041
     Dates: start: 20160623, end: 20160824
  3. 5-FU [Concomitant]
     Active Substance: FLUOROURACIL
     Dosage: 3432 MG, Q2WEEKS
     Route: 041
     Dates: start: 20161130, end: 20161214
  4. CHLORPHENIRAMINE MALEATE. [Concomitant]
     Active Substance: CHLORPHENIRAMINE MALEATE
     Indication: COLON CANCER
     Dosage: 5 MG, UNK
     Route: 042
     Dates: start: 20160623, end: 20160824
  5. FAMOTIDINE. [Concomitant]
     Active Substance: FAMOTIDINE
     Indication: COLON CANCER
     Dosage: 20 MG, UNK
     Route: 042
     Dates: start: 20160623, end: 20160824
  6. DEXAMETHASONE SODIUM PHOSPHATE. [Concomitant]
     Active Substance: DEXAMETHASONE SODIUM PHOSPHATE
     Indication: COLON CANCER
     Dosage: 6.6 MG, UNK
     Route: 042
     Dates: start: 20160623, end: 20160824
  7. CALCIUM LEVOFOLINATE [Concomitant]
     Active Substance: LEVOLEUCOVORIN CALCIUM
     Dosage: 286 MG, Q2WEEKS
     Route: 041
     Dates: start: 20161130, end: 20161214
  8. CALCIUM LEVOFOLINATE [Concomitant]
     Active Substance: LEVOLEUCOVORIN CALCIUM
     Dosage: 286 MG, Q2WEEKS
     Route: 041
     Dates: start: 20170329
  9. 5-FU [Concomitant]
     Active Substance: FLUOROURACIL
     Dosage: 3432 MG, Q2WEEKS
     Route: 041
     Dates: start: 20160928, end: 20161102
  10. 5-FU [Concomitant]
     Active Substance: FLUOROURACIL
     Dosage: 3432 MG, Q2WEEKS
     Route: 041
     Dates: start: 20170215, end: 20170301
  11. 5-FU [Concomitant]
     Active Substance: FLUOROURACIL
     Dosage: 3432 MG, Q2WEEKS
     Route: 041
     Dates: start: 20160623, end: 20160826
  12. 5-FU [Concomitant]
     Active Substance: FLUOROURACIL
     Dosage: 572 MG, Q2WK
     Route: 040
     Dates: start: 20170329
  13. 5-FU [Concomitant]
     Active Substance: FLUOROURACIL
     Dosage: 572 MG, Q2WK
     Route: 040
     Dates: start: 20170215, end: 20170301
  14. PANITUMUMAB [Suspect]
     Active Substance: PANITUMUMAB
     Indication: COLON CANCER
     Dosage: 298 MG, Q2WK
     Route: 041
     Dates: start: 20160623, end: 20160824
  15. PANITUMUMAB [Suspect]
     Active Substance: PANITUMUMAB
     Dosage: 4.8 MG/KG, Q2WK
     Route: 041
     Dates: start: 20160928, end: 20161102
  16. PANITUMUMAB [Suspect]
     Active Substance: PANITUMUMAB
     Dosage: 4.8 MG/KG, Q2WK
     Route: 041
     Dates: start: 20170329
  17. OXALIPLATIN. [Concomitant]
     Active Substance: OXALIPLATIN
     Dosage: 121 MG, Q2WEEKS
     Route: 041
     Dates: start: 20170329
  18. CALCIUM LEVOFOLINATE [Concomitant]
     Active Substance: LEVOLEUCOVORIN CALCIUM
     Dosage: 286 MG, Q2WEEKS
     Route: 041
     Dates: start: 20170215, end: 20170301
  19. 5-FU [Concomitant]
     Active Substance: FLUOROURACIL
     Dosage: 572 MG, Q2WK
     Route: 040
     Dates: start: 20160928, end: 20161102
  20. PANITUMUMAB [Suspect]
     Active Substance: PANITUMUMAB
     Dosage: 4.8 MG/KG, Q2WK
     Route: 041
     Dates: start: 20170215, end: 20170301
  21. DOXYCYCLINE HYDROCHLORIDE [Suspect]
     Active Substance: DOXYCYCLINE HYDROCHLORIDE
     Indication: PROPHYLAXIS
     Dosage: 200 MG, QD
     Route: 048
     Dates: start: 20160908, end: 20160918
  22. OXALIPLATIN. [Concomitant]
     Active Substance: OXALIPLATIN
     Dosage: 121 MG, Q2WEEKS
     Route: 041
     Dates: start: 20170215, end: 20170301
  23. 5-FU [Concomitant]
     Active Substance: FLUOROURACIL
     Dosage: 3432 MG, Q2WEEKS
     Route: 041
     Dates: start: 20170329
  24. PANITUMUMAB [Suspect]
     Active Substance: PANITUMUMAB
     Dosage: 4.8 MG/KG, Q2WK
     Route: 041
     Dates: start: 20161130, end: 20161214
  25. OXALIPLATIN. [Concomitant]
     Active Substance: OXALIPLATIN
     Dosage: 121 MG, Q2WEEKS
     Route: 041
     Dates: start: 20160928, end: 20161102
  26. CALCIUM LEVOFOLINATE [Concomitant]
     Active Substance: LEVOLEUCOVORIN CALCIUM
     Dosage: 286 MG, Q2WEEKS
     Route: 041
     Dates: start: 20160928, end: 20161102
  27. 5-FU [Concomitant]
     Active Substance: FLUOROURACIL
     Dosage: 572 MG, Q2WK
     Route: 040
     Dates: start: 20161130, end: 20161214
  28. PALONOSETRON HYDROCHLORIDE. [Concomitant]
     Active Substance: PALONOSETRON HYDROCHLORIDE
     Indication: COLON CANCER
     Dosage: 0.75 MG, UNK
     Route: 042
     Dates: start: 20160623, end: 20160824
  29. OXALIPLATIN. [Concomitant]
     Active Substance: OXALIPLATIN
     Dosage: 121 MG, Q2WEEKS
     Route: 041
     Dates: start: 20161130, end: 20161214
  30. 5-FU [Concomitant]
     Active Substance: FLUOROURACIL
     Indication: COLON CANCER
     Dosage: 572 MG, Q2WEEKS
     Route: 040
     Dates: start: 20160623, end: 20160824

REACTIONS (20)
  - Decreased appetite [Recovering/Resolving]
  - Stomatitis [Recovered/Resolved]
  - Dermatitis acneiform [Recovered/Resolved]
  - Vomiting [Recovered/Resolved]
  - Paronychia [Recovered/Resolved]
  - Dysgeusia [Unknown]
  - Fatigue [Recovering/Resolving]
  - Constipation [Recovered/Resolved]
  - Pain [Unknown]
  - Palmar-plantar erythrodysaesthesia syndrome [Unknown]
  - Skin fissures [Recovered/Resolved]
  - Stomatitis [Unknown]
  - White blood cell count increased [Recovering/Resolving]
  - Decreased appetite [Recovered/Resolved]
  - Decreased appetite [Unknown]
  - Epistaxis [Unknown]
  - Peripheral sensory neuropathy [Unknown]
  - Decreased appetite [Recovering/Resolving]
  - Pruritus [Recovered/Resolved]
  - Nausea [Recovered/Resolved]

NARRATIVE: CASE EVENT DATE: 20160626
